FAERS Safety Report 7776467-8 (Version None)
Quarter: 2011Q3

REPORT INFORMATION
  Report Type: 
  Country: None (occurrence: None)
  Receive Date: 20110926
  Receipt Date: 20110913
  Transmission Date: 20111222
  Serious: Yes (Hospitalization)
  Sender: FDA-Public Use
  Company Number: US-ELI_LILLY_AND_COMPANY-US201005001282

PATIENT
  Sex: Female

DRUGS (3)
  1. FORTEO [Suspect]
     Dosage: 20 UG, QD
     Route: 065
  2. FORTEO [Suspect]
     Indication: OSTEOPOROSIS
     Dosage: 20 UG, DAILY (1/D)
     Route: 065
     Dates: start: 20100406
  3. DARVOCET [Concomitant]
     Indication: MUSCULOSKELETAL STIFFNESS

REACTIONS (8)
  - HOSPITALISATION [None]
  - DRUG INEFFECTIVE [None]
  - DRUG EFFECT DECREASED [None]
  - PAIN [None]
  - JOINT CREPITATION [None]
  - MYALGIA [None]
  - ARTHROPATHY [None]
  - INTENTIONAL DRUG MISUSE [None]
